FAERS Safety Report 10918383 (Version 2)
Quarter: 2015Q2

REPORT INFORMATION
  Report Type: Spontaneous
  Country: US (occurrence: None)
  Receive Date: 20150311
  Receipt Date: 20150625
  Transmission Date: 20150821
  Serious: Yes (Death)
  Sender: FDA-Public Use
  Company Number: 1713747-2015-99973

PATIENT
  Sex: Female

DRUGS (3)
  1. LIBERTY CYCLER SET [Concomitant]
  2. DELFLEX [Suspect]
     Active Substance: CALCIUM CHLORIDE\DEXTROSE MONOHYDRATE\MAGNESIUM CHLORIDE\SODIUM CHLORIDE\SODIUM LACTATE
     Indication: CHRONIC KIDNEY DISEASE
     Dosage: PERITONEAL DIALYSIS
     Dates: start: 20140223, end: 20140223
  3. LIBERTY CYCLER [Concomitant]
     Active Substance: DEVICE

REACTIONS (2)
  - Chest pain [None]
  - Dyspnoea [None]

NARRATIVE: CASE EVENT DATE: 20150223
